FAERS Safety Report 4597490-0 (Version None)
Quarter: 2005Q1

REPORT INFORMATION
  Report Type: 
  Country: None (occurrence: None)
  Receive Date: 20050303
  Receipt Date: 20050211
  Transmission Date: 20050727
  Serious: Yes (Death, Hospitalization)
  Sender: FDA-Public Use
  Company Number: US-ROCHE-395421

PATIENT
  Age: 86 Year
  Sex: Female
  Weight: 60.3 kg

DRUGS (9)
  1. XELODA [Suspect]
     Indication: RECTAL CANCER
     Dosage: DOSING AMOUNT WAS BELOW 800 MG/M2
     Route: 048
     Dates: start: 20050108, end: 20050117
  2. LEVAQUIN [Concomitant]
     Route: 048
  3. NEXIUM [Concomitant]
  4. XANEF [Concomitant]
  5. TORSEMIDE [Concomitant]
  6. DIGOXIN [Concomitant]
  7. LISINOPRIL [Concomitant]
  8. LIPITOR [Concomitant]
  9. COREG [Concomitant]

REACTIONS (4)
  - NEUTROPENIA [None]
  - NEUTROPENIC SEPSIS [None]
  - PLATELET COUNT DECREASED [None]
  - WHITE BLOOD CELL COUNT DECREASED [None]
